FAERS Safety Report 7632618-7 (Version None)
Quarter: 2011Q3

REPORT INFORMATION
  Report Type: 
  Country: None (occurrence: None)
  Receive Date: 20110725
  Receipt Date: 20101101
  Transmission Date: 20111222
  Serious: Yes (Hospitalization)
  Sender: FDA-Public Use
  Company Number: US-BRISTOL-MYERS SQUIBB COMPANY-15361207

PATIENT
  Age: 22 Year
  Sex: Female
  Weight: 43 kg

DRUGS (6)
  1. ALDACTONE [Concomitant]
  2. COUMADIN [Suspect]
     Dosage: UNK-06MAR2010 14MAR2010-ONGOING
  3. LASIX [Concomitant]
  4. LOVENOX [Suspect]
     Indication: PROPHYLAXIS
     Dosage: 100MG/ML,INJECT,SOLN;100MG,TWICE DAILY:STOPPED ON 11MAR;RESRTED ON 12MAR,13MAR.STOPPED:15MAR2010
     Route: 051
     Dates: start: 20100307, end: 20100315
  5. ATENOLOL [Concomitant]
  6. ASPIRIN [Concomitant]
     Dates: end: 20100301

REACTIONS (1)
  - CEREBRAL HAEMORRHAGE [None]
